FAERS Safety Report 6901490-2 (Version None)
Quarter: 2010Q3

REPORT INFORMATION
  Report Type: 
  Country: None (occurrence: None)
  Receive Date: 20100803
  Receipt Date: 20080220
  Transmission Date: 20110219
  Serious: No
  Sender: FDA-Public Use
  Company Number: US-PFIZER INC-2008012970

PATIENT
  Sex: Female
  Weight: 59.09 kg

DRUGS (9)
  1. LYRICA [Suspect]
     Indication: HERPES ZOSTER
  2. HYDROCHLOROTHIAZIDE [Concomitant]
  3. XANAX [Concomitant]
  4. LIPITOR [Concomitant]
  5. HYDROCODONE BITARTRATE [Concomitant]
  6. FOLIC ACID [Concomitant]
  7. CALCIUM [Concomitant]
  8. FISH OIL [Concomitant]
  9. VITAMIN D [Concomitant]

REACTIONS (2)
  - HERPES ZOSTER [None]
  - WEIGHT INCREASED [None]
